FAERS Safety Report 6539075-2 (Version None)
Quarter: 2010Q1

REPORT INFORMATION
  Report Type: 
  Country: None (occurrence: None)
  Receive Date: 20100115
  Receipt Date: 20100106
  Transmission Date: 20100710
  Serious: Yes (Other)
  Sender: FDA-Public Use
  Company Number: PHHY2009CA06201

PATIENT
  Sex: Female

DRUGS (3)
  1. ACLASTA [Suspect]
     Indication: OSTEOPOROSIS
     Dosage: ONCE YEARLY
     Dates: start: 20081001
  2. ACLASTA [Suspect]
     Dosage: 5 MG/100 ML
     Route: 042
     Dates: start: 20090924
  3. CALCIUM WITH VITAMIN D [Concomitant]

REACTIONS (6)
  - BURNING SENSATION [None]
  - FATIGUE [None]
  - RASH MACULAR [None]
  - SKIN HAEMORRHAGE [None]
  - VASCULITIS [None]
  - VIRAEMIA [None]
